FAERS Safety Report 11031271 (Version 1)
Quarter: 2015Q2

REPORT INFORMATION
  Report Type: Spontaneous
  Country: US (occurrence: None)
  Receive Date: 20150414
  Receipt Date: 20150414
  Transmission Date: 20150821
  Serious: Yes (Hospitalization, Disabling)
  Sender: FDA-Public Use
  Company Number: None

PATIENT
  Age: 36 Year

DRUGS (13)
  1. VALTREX [Concomitant]
     Active Substance: VALACYCLOVIR HYDROCHLORIDE
  2. HYDROXYZINE [Concomitant]
     Active Substance: HYDROXYZINE\HYDROXYZINE HYDROCHLORIDE
  3. ETODOLAC ANTI INFLAMMATORY [Concomitant]
  4. DIM [Concomitant]
  5. STOMACH ENZYMES [Concomitant]
  6. D-MANNOSE [Concomitant]
  7. CURAMIN [Concomitant]
     Active Substance: HERBALS
  8. PROBIOTICS [Concomitant]
     Active Substance: PROBIOTICS NOS
  9. L-LYSINE [Concomitant]
     Active Substance: LYSINE
  10. PRELIEF [Concomitant]
     Active Substance: CALCIUM GLYCEROPHOSPHATE
  11. CYMBALTA [Suspect]
     Active Substance: DULOXETINE HYDROCHLORIDE
     Indication: FIBROMYALGIA
     Dosage: CYMBALTA
     Route: 048
     Dates: start: 20150413
  12. CALCIUM [Concomitant]
     Active Substance: CALCIUM
  13. VITAMIN D [Concomitant]
     Active Substance: CHOLECALCIFEROL

REACTIONS (2)
  - Diarrhoea [None]
  - Seizure [None]

NARRATIVE: CASE EVENT DATE: 20150409
